FAERS Safety Report 18479789 (Version 1)
Quarter: 2020Q4

REPORT INFORMATION
  Report Type: Spontaneous
  Country: US (occurrence: US)
  Receive Date: 20201106
  Receipt Date: 20201106
  Transmission Date: 20210114
  Serious: Yes (Death)
  Sender: FDA-Public Use
  Company Number: None

PATIENT
  Age: 65 Year
  Sex: Female

DRUGS (2)
  1. OFEV [Suspect]
     Active Substance: NINTEDANIB
     Indication: IDIOPATHIC INTERSTITIAL PNEUMONIA
     Route: 048
     Dates: start: 20191118
  2. OFEV [Suspect]
     Active Substance: NINTEDANIB
     Indication: IDIOPATHIC PULMONARY FIBROSIS
     Route: 048
     Dates: start: 20191118

REACTIONS (7)
  - Dyspnoea [None]
  - Hypotension [None]
  - Pain [None]
  - Pleuritic pain [None]
  - Pneumothorax [None]
  - Refusal of treatment by patient [None]
  - Anxiety [None]

NARRATIVE: CASE EVENT DATE: 20201103
